FAERS Safety Report 12342327 (Version 1)
Quarter: 2016Q2

REPORT INFORMATION
  Report Type: Spontaneous
  Country: US (occurrence: US)
  Receive Date: 20160506
  Receipt Date: 20160506
  Transmission Date: 20160815
  Serious: No
  Sender: FDA-Public Use
  Company Number: US-PFIZER INC-2016210936

PATIENT
  Age: 60 Year
  Sex: Female

DRUGS (10)
  1. CITRACAL [Concomitant]
     Active Substance: CALCIUM CITRATE
     Dosage: TAKE 2 TABLETS AS NEEDED (CALCIUM CITRATE: 250, VITAMIN D3: 62.5)
     Route: 048
  2. ZOLPIDEM TARTRATE. [Concomitant]
     Active Substance: ZOLPIDEM TARTRATE
     Indication: SLEEP DISORDER
     Dosage: 10 MG, 1 TABLET AS NEEDED (QHS)
     Route: 048
     Dates: start: 20060608
  3. LYRICA [Suspect]
     Active Substance: PREGABALIN
     Indication: HERPES ZOSTER
     Dosage: 100 MG, 3X/DAY
     Route: 048
  4. DEXAMETHASONE. [Concomitant]
     Active Substance: DEXAMETHASONE
     Dosage: 4 MG, TAKE 10 TABLETS (40MG) WEEKLY
     Route: 048
     Dates: start: 20060608
  5. LASIX [Concomitant]
     Active Substance: FUROSEMIDE
     Dosage: 20 MG, (TAKE 1 TABLET PO AS DIRECTED)
     Route: 048
     Dates: start: 20090416
  6. ZYRTEC [Concomitant]
     Active Substance: CETIRIZINE HYDROCHLORIDE
     Dosage: 5 MG, 1 TABLET AS NEEDED
     Route: 048
  7. ALBUTEROL SULFATE. [Concomitant]
     Active Substance: ALBUTEROL SULFATE
     Dosage: 1 DF, AS NEEDED (90 MCG HFA TAKE ONE PUFF 4 TIMES A DAY)
     Dates: start: 20100603
  8. LYRICA [Suspect]
     Active Substance: PREGABALIN
     Indication: PAIN
  9. NIFEDIPINE. [Concomitant]
     Active Substance: NIFEDIPINE
     Dosage: 30 MG, 1 TABLET 2X/DAY
     Route: 048
     Dates: start: 20140521
  10. ONDANSETRON [Concomitant]
     Active Substance: ONDANSETRON
     Dosage: 8 MG, AS NEEDED (Q8H)
     Route: 048

REACTIONS (1)
  - Drug effect incomplete [Unknown]
